FAERS Safety Report 16196487 (Version 1)
Quarter: 2019Q2

REPORT INFORMATION
  Report Type: Spontaneous
  Country: CH (occurrence: CH)
  Receive Date: 20190415
  Receipt Date: 20190415
  Transmission Date: 20190711
  Serious: Yes (Hospitalization)
  Sender: FDA-Public Use
  Company Number: CH-TEVA-2019-CH-1038338

PATIENT
  Age: 79 Year
  Sex: Male

DRUGS (3)
  1. HEPARIN [Concomitant]
     Active Substance: HEPARIN SODIUM
     Indication: ACUTE MYOCARDIAL INFARCTION
     Dosage: UNKNOWN DOSE ADMINISTERED AT THE TIME OF ADMISSION;LATER DURING OFF-PUMP TRIPLE BYPASS HEART SURGERY
     Route: 065
  2. CLOPIDOGREL [Suspect]
     Active Substance: CLOPIDOGREL BISULFATE
     Route: 065
  3. ACETYLSALICYLIC ACID [Suspect]
     Active Substance: ASPIRIN
     Route: 065

REACTIONS (3)
  - Spinal cord compression [Recovered/Resolved]
  - Spinal epidural haematoma [Recovered/Resolved]
  - Quadriparesis [Recovered/Resolved]
